FAERS Safety Report 14875563 (Version 2)
Quarter: 2019Q2

REPORT INFORMATION
  Report Type: Report from Study
  Country: US (occurrence: US)
  Receive Date: 20180510
  Receipt Date: 20190627
  Transmission Date: 20190711
  Serious: No
  Sender: FDA-Public Use
  Company Number: PHEH2018US017589

PATIENT
  Sex: Female

DRUGS (1)
  1. GILENYA [Suspect]
     Active Substance: FINGOLIMOD HYDROCHLORIDE
     Indication: PATERNAL EXPOSURE DURING PREGNANCY
     Dosage: FETAL DRUG EXPOSURE DOSE: NOT PROVIDED
     Route: 050

REACTIONS (1)
  - Exposure via partner [Unknown]
